FAERS Safety Report 4553042-X (Version None)
Quarter: 2005Q1

REPORT INFORMATION
  Report Type: 
  Country: None (occurrence: None)
  Receive Date: 20050113
  Receipt Date: 20050106
  Transmission Date: 20050727
  Serious: Yes (Other)
  Sender: FDA-Public Use
  Company Number: S05-USA-00062-01

PATIENT
  Age: 31 Year
  Sex: Male
  Weight: 81.6475 kg

DRUGS (3)
  1. LEXAPRO [Suspect]
     Indication: DEPRESSION
     Dosage: 20 MG QD PO
     Route: 048
     Dates: start: 20040501, end: 20050101
  2. ALCOHOL [Suspect]
  3. WELLBUTRIN [Concomitant]

REACTIONS (1)
  - BLOOD ALCOHOL INCREASED [None]
